FAERS Safety Report 4268666-7 (Version None)
Quarter: 2004Q1

REPORT INFORMATION
  Report Type: 
  Country: None (occurrence: None)
  Receive Date: 20040108
  Receipt Date: 20040102
  Transmission Date: 20041129
  Serious: Yes (Other)
  Sender: FDA-Public Use
  Company Number: 200314724BCC

PATIENT
  Age: 90 Year
  Sex: Female
  Weight: 67.1324 kg

DRUGS (5)
  1. NEO-SYNEPHRINE (PHENYLEPHRINE HYDROCHLORIDE) [Suspect]
     Dosage: NASAL
     Route: 045
  2. PRINIVIL [Concomitant]
  3. SYNTHROID [Concomitant]
  4. AMBIEN [Concomitant]
  5. BETAPACE [Concomitant]

REACTIONS (3)
  - DRUG DEPENDENCE [None]
  - INTENTIONAL MISUSE [None]
  - OVERDOSE [None]
